FAERS Safety Report 8278392-5 (Version None)
Quarter: 2012Q2

REPORT INFORMATION
  Report Type: 
  Country: None (occurrence: None)
  Receive Date: 20120412
  Receipt Date: 20111117
  Transmission Date: 20120825
  Serious: No
  Sender: FDA-Public Use
  Company Number: US-ASTRAZENECA-2011SE70365

PATIENT
  Age: 55 Year
  Sex: Female
  Weight: 63 kg

DRUGS (6)
  1. NEXIUM [Suspect]
     Indication: GASTROOESOPHAGEAL REFLUX DISEASE
     Route: 048
  2. NEXIUM [Suspect]
     Indication: OESOPHAGITIS
     Route: 048
  3. CALCIUM CARBONATE [Concomitant]
  4. FIBRECON [Concomitant]
  5. MULTI-VITAMINS [Concomitant]
  6. HIGH BLOOD PRESSURE PILLS [Concomitant]
     Indication: HYPERTENSION

REACTIONS (2)
  - COLITIS [None]
  - DIVERTICULITIS [None]
